FAERS Safety Report 9902111 (Version 10)
Quarter: 2014Q4

REPORT INFORMATION
  Report Type: Spontaneous
  Country: US (occurrence: US)
  Receive Date: 20140217
  Receipt Date: 20141001
  Transmission Date: 20150529
  Serious: Yes (Hospitalization, Disabling, Other)
  Sender: FDA-Public Use
  Company Number: US-009507513-1203USA02828

PATIENT
  Sex: Female
  Weight: 83.45 kg

DRUGS (3)
  1. FOSAMAX [Suspect]
     Active Substance: ALENDRONATE SODIUM
     Indication: OSTEOPOROSIS
     Dosage: 10 MG, QD
     Route: 048
     Dates: start: 200002
  2. FOSAMAX [Suspect]
     Active Substance: ALENDRONATE SODIUM
     Indication: OSTEOPENIA
     Dosage: 70 MG, UNK
     Route: 048
  3. FOSAMAX [Suspect]
     Active Substance: ALENDRONATE SODIUM
     Indication: BONE DENSITY DECREASED
     Dosage: 10 MG, UNK
     Route: 048
     Dates: start: 1996, end: 200612

REACTIONS (64)
  - Internal fixation of fracture [Recovered/Resolved]
  - Knee arthroplasty [Unknown]
  - Medical device removal [Unknown]
  - Bone metabolism disorder [Unknown]
  - Osteoarthritis [Unknown]
  - Osteoarthritis [Unknown]
  - Foot fracture [Unknown]
  - Osteomalacia [Unknown]
  - Bursitis [Unknown]
  - Device breakage [Unknown]
  - Adjustment disorder with depressed mood [Unknown]
  - Intramedullary rod insertion [Unknown]
  - Fracture delayed union [Recovered/Resolved]
  - Skin disorder [Unknown]
  - Tachycardia [Unknown]
  - Hypertension [Unknown]
  - Limb asymmetry [Unknown]
  - Depression [Unknown]
  - Osteoporosis [Unknown]
  - Medical device removal [Unknown]
  - Sleep disorder [Unknown]
  - Endocrine disorder [Unknown]
  - Hyperlipidaemia [Unknown]
  - Alcohol abuse [Unknown]
  - Fracture delayed union [Unknown]
  - Drug ineffective [Unknown]
  - Surgery [Unknown]
  - Femur fracture [Unknown]
  - Closed fracture manipulation [Unknown]
  - Spinal osteoarthritis [Unknown]
  - Urge incontinence [Unknown]
  - Pain in extremity [Unknown]
  - Closed fracture manipulation [Recovered/Resolved]
  - Fracture nonunion [Unknown]
  - Femur fracture [Unknown]
  - Urinary tract disorder [Unknown]
  - Fracture delayed union [Unknown]
  - Rib fracture [Unknown]
  - Skin lesion [Unknown]
  - Anxiety [Unknown]
  - Drug ineffective [Unknown]
  - Haematoma evacuation [Unknown]
  - Removal of internal fixation [Unknown]
  - Skin cancer [Unknown]
  - Rotator cuff syndrome [Unknown]
  - Weight increased [Unknown]
  - Depression [Unknown]
  - Treatment noncompliance [Unknown]
  - Increased tendency to bruise [Unknown]
  - Gastrooesophageal reflux disease [Unknown]
  - Oedema peripheral [Unknown]
  - Intramedullary rod insertion [Unknown]
  - Bone graft [Unknown]
  - Internal fixation of fracture [Unknown]
  - Arthralgia [Unknown]
  - Fall [Unknown]
  - Intramedullary rod insertion [Unknown]
  - Debridement [Unknown]
  - Bone graft [Unknown]
  - Femur fracture [Unknown]
  - Femur fracture [Unknown]
  - Transfusion [Unknown]
  - Foot fracture [Recovered/Resolved]
  - Hyperthyroidism [Unknown]

NARRATIVE: CASE EVENT DATE: 19980115
